FAERS Safety Report 8968812 (Version 1)
Quarter: 2012Q4

REPORT INFORMATION
  Report Type: 
  Country: US (occurrence: US)
  Receive Date: 20121218
  Receipt Date: 20121218
  Transmission Date: 20130627
  Serious: Yes (Hospitalization)
  Sender: FDA-Public Use
  Company Number: US-BRISTOL-MYERS SQUIBB COMPANY-16357873

PATIENT
  Age: 68 Year
  Sex: Male

DRUGS (4)
  1. ABILIFY [Suspect]
     Indication: DEMENTIA
  2. ABILIFY [Suspect]
     Indication: PSYCHOTIC DISORDER
  3. ZOLOFT [Concomitant]
  4. SEROQUEL [Concomitant]
     Dosage: Seroquel XR

REACTIONS (1)
  - Adverse event [Unknown]
